FAERS Safety Report 6260270-4 (Version None)
Quarter: 2009Q3

REPORT INFORMATION
  Report Type: 
  Country: None (occurrence: None)
  Receive Date: 20090708
  Receipt Date: 20090623
  Transmission Date: 20100115
  Serious: Yes (Hospitalization)
  Sender: FDA-Public Use
  Company Number: JP-ASTRAZENECA-2009SE02511

PATIENT
  Age: 85 Year
  Sex: Male

DRUGS (9)
  1. MEROPEN [Suspect]
     Indication: PSEUDOMONAS INFECTION
     Dosage: WAS ADMINISTERED UNTIL CAUSAL BACTERIA WAS IDENTIFIED
     Route: 041
  2. MEROPEN [Suspect]
     Route: 041
     Dates: start: 20080123, end: 20080131
  3. LEVOFLOXACIN [Concomitant]
     Indication: URINARY TRACT INFECTION
     Dates: start: 20071001
  4. CEFAZOLIN [Concomitant]
     Indication: STAPHYLOCOCCAL INFECTION
     Route: 041
     Dates: end: 20080227
  5. CEFAZOLIN [Concomitant]
     Indication: ABDOMINAL WALL ABSCESS
     Route: 041
     Dates: end: 20080227
  6. CEFAZOLIN [Concomitant]
     Indication: INFECTIVE SPONDYLITIS
     Route: 041
     Dates: end: 20080227
  7. CEFEPIME [Concomitant]
     Indication: PSEUDOMONAS INFECTION
  8. FLUCONAZOLE [Concomitant]
     Indication: FUNGAL INFECTION
  9. CEFACLOR [Concomitant]
     Route: 048
     Dates: start: 20080109

REACTIONS (1)
  - DERMATITIS EXFOLIATIVE [None]
